FAERS Safety Report 7414733-6 (Version None)
Quarter: 2011Q2

REPORT INFORMATION
  Report Type: 
  Country: None (occurrence: None)
  Receive Date: 20110414
  Receipt Date: 20110405
  Transmission Date: 20111010
  Serious: Yes (Other)
  Sender: FDA-Public Use
  Company Number: JP-ASTRAZENECA-2011SE19440

PATIENT
  Age: 74 Year

DRUGS (1)
  1. IRESSA [Suspect]
     Route: 048

REACTIONS (1)
  - GRANULOMA SKIN [None]
